FAERS Safety Report 21704742 (Version 6)
Quarter: 2024Q1

REPORT INFORMATION
  Report Type: Spontaneous
  Country: JP (occurrence: JP)
  Receive Date: 20221209
  Receipt Date: 20240214
  Transmission Date: 20240410
  Serious: Yes (Other)
  Sender: FDA-Public Use
  Company Number: JP-002147023-NVSJ2022JP275608

PATIENT
  Age: 70 Year
  Sex: Male

DRUGS (4)
  1. BEOVU [Suspect]
     Active Substance: BROLUCIZUMAB-DBLL
     Indication: Detachment of retinal pigment epithelium
     Dosage: 6 MG, ADMINISTERED TO THE LEFT EYE
     Route: 031
     Dates: start: 202112, end: 202112
  2. BEOVU [Suspect]
     Active Substance: BROLUCIZUMAB-DBLL
     Indication: Age-related macular degeneration
     Dosage: 6 MG, ADMINISTERED TO THE LEFT EYE
     Route: 031
     Dates: start: 202203, end: 202203
  3. TRIAMCINOLONE ACETONIDE [Concomitant]
     Active Substance: TRIAMCINOLONE ACETONIDE
     Indication: Detachment of retinal pigment epithelium
     Dosage: ADMINISTERED TO THE LEFT EYE
     Route: 031
     Dates: start: 202112, end: 202112
  4. TRIAMCINOLONE ACETONIDE [Concomitant]
     Active Substance: TRIAMCINOLONE ACETONIDE
     Dosage: ADMINISTERED TO THE LEFT EYE
     Route: 031
     Dates: start: 202203, end: 202203

REACTIONS (2)
  - Retinal degeneration [Unknown]
  - Visual acuity reduced [Not Recovered/Not Resolved]

NARRATIVE: CASE EVENT DATE: 20220401
